FAERS Safety Report 4318473-1 (Version None)
Quarter: 2004Q1

REPORT INFORMATION
  Report Type: 
  Country: None (occurrence: None)
  Receive Date: 20040316
  Receipt Date: 20040316
  Transmission Date: 20041129
  Serious: Yes (Death)
  Sender: FDA-Public Use
  Company Number: None

PATIENT
  Sex: Male
  Weight: 88.9 kg

DRUGS (13)
  1. THALIDOMIDE [Suspect]
     Indication: PANCREATIC CARCINOMA
     Dosage: 300 MG QD
     Dates: start: 20031010, end: 20031104
  2. CELEBREX [Suspect]
     Indication: PANCREATIC CARCINOMA
     Dosage: 400 MG BID
     Dates: start: 20031010, end: 20031104
  3. GEMZAR [Suspect]
     Indication: PANCREATIC CARCINOMA
     Dosage: 1000 MG/M2
     Dates: start: 20031022
  4. PREVACID-ACID REFLUX [Concomitant]
  5. COLACE [Concomitant]
  6. MS CONTIN [Concomitant]
  7. ASPIRIN [Concomitant]
  8. OXYCODONE [Concomitant]
  9. EX-LAX [Concomitant]
  10. PROMETHAZINE [Concomitant]
  11. COMPAZINE [Concomitant]
  12. ZOFRAN [Concomitant]
  13. PERI-COLACE [Concomitant]

REACTIONS (7)
  - ANAEMIA [None]
  - DISEASE PROGRESSION [None]
  - FEELING ABNORMAL [None]
  - NAUSEA [None]
  - RASH ERYTHEMATOUS [None]
  - RASH PRURITIC [None]
  - SEDATION [None]
